FAERS Safety Report 20506812 (Version 1)
Quarter: 2022Q1

REPORT INFORMATION
  Report Type: Spontaneous
  Country: CN (occurrence: CN)
  Receive Date: 20220223
  Receipt Date: 20220223
  Transmission Date: 20220423
  Serious: Yes (Other)
  Sender: FDA-Public Use
  Company Number: CN-PFIZER INC-202200248209

PATIENT
  Age: 36 Year
  Sex: Female
  Weight: 73 kg

DRUGS (3)
  1. CARBOPROST TROMETHAMINE [Suspect]
     Active Substance: CARBOPROST TROMETHAMINE
     Indication: Postpartum haemorrhage
     Dosage: 250 UG, 1X/DAY
     Route: 019
     Dates: start: 20220127, end: 20220127
  2. CARBOPROST TROMETHAMINE [Suspect]
     Active Substance: CARBOPROST TROMETHAMINE
     Dosage: 250 UG, 1X/DAY
     Route: 019
     Dates: start: 20220128, end: 20220128
  3. CARBOPROST TROMETHAMINE [Suspect]
     Active Substance: CARBOPROST TROMETHAMINE
     Dosage: 250 UG, 1X/DAY
     Route: 019
     Dates: start: 20220130, end: 20220130

REACTIONS (5)
  - Frequent bowel movements [Recovering/Resolving]
  - Diarrhoea [Recovering/Resolving]
  - Nausea [Recovering/Resolving]
  - Vomiting [Recovering/Resolving]
  - Off label use [Recovered/Resolved]

NARRATIVE: CASE EVENT DATE: 20220127
